FAERS Safety Report 5860520-X (Version None)
Quarter: 2008Q3

REPORT INFORMATION
  Report Type: 
  Country: None (occurrence: None)
  Receive Date: 20080827
  Receipt Date: 20071004
  Transmission Date: 20090109
  Serious: No
  Sender: FDA-Public Use
  Company Number: US-ABBOTT-07P-163-0419362-00

PATIENT
  Age: 35 Year
  Sex: Male

DRUGS (3)
  1. COATED PDS [Suspect]
     Indication: BLOOD CHOLESTEROL
     Dosage: ORANGE
     Route: 048
     Dates: start: 20070919
  2. COATED PDS [Suspect]
     Indication: HIGH DENSITY LIPOPROTEIN DECREASED
  3. COATED PDS [Suspect]
     Indication: LOW DENSITY LIPOPROTEIN INCREASED

REACTIONS (1)
  - RASH [None]
